FAERS Safety Report 8884841 (Version 2)
Quarter: 2013Q1

REPORT INFORMATION
  Report Type: Spontaneous
  Country: DE (occurrence: DE)
  Receive Date: 20121105
  Receipt Date: 20130117
  Transmission Date: 20140127
  Serious: Yes (Hospitalization, Other)
  Sender: FDA-Public Use
  Company Number: DE-BRISTOL-MYERS SQUIBB COMPANY-17066531

PATIENT
  Age: 49 Year
  Sex: Male
  Weight: 120 kg

DRUGS (3)
  1. ABILIFY TABS [Suspect]
     Route: 048
     Dates: start: 2008
  2. FORMOLINE L112 [Interacting]
     Indication: WEIGHT DECREASED
     Dosage: 1DF:2X2 TABS/DAY
     Route: 048
     Dates: start: 20120601, end: 20120614
  3. LAMOTRIGINE [Suspect]
     Indication: BIPOLAR DISORDER
     Route: 048
     Dates: start: 2007

REACTIONS (2)
  - Mania [Recovered/Resolved]
  - Drug interaction [Unknown]
